FAERS Safety Report 9055336 (Version 1)
Quarter: 2013Q1

REPORT INFORMATION
  Report Type: Spontaneous
  Country: US (occurrence: US)
  Receive Date: 20130206
  Receipt Date: 20130206
  Transmission Date: 20140127
  Serious: Yes (Other)
  Sender: FDA-Public Use
  Company Number: US-ROCHE-1187080

PATIENT
  Sex: Male

DRUGS (5)
  1. PEGASYS [Suspect]
     Indication: HEPATITIS C
     Route: 065
     Dates: start: 20130114
  2. RIBAVIRIN [Suspect]
     Indication: HEPATITIS C
     Route: 065
     Dates: start: 20130114
  3. TELAPREVIR [Suspect]
     Indication: HEPATITIS C
     Route: 048
     Dates: start: 20130114
  4. TAMSULOSIN [Concomitant]
     Indication: BENIGN PROSTATIC HYPERPLASIA
     Route: 065
  5. VITAMIN D3 [Concomitant]
     Route: 048

REACTIONS (3)
  - Emotional disorder [Unknown]
  - Dyspnoea [Unknown]
  - Diplopia [Recovered/Resolved]
